FAERS Safety Report 23418475 (Version 1)
Quarter: 2024Q1

REPORT INFORMATION
  Report Type: Other
  Country: IE (occurrence: IE)
  Receive Date: 20240118
  Receipt Date: 20240118
  Transmission Date: 20240410
  Serious: Yes (Death, Life-Threatening, Hospitalization, Other)
  Sender: FDA-Public Use
  Company Number: None

PATIENT
  Age: 54 Year
  Sex: Male

DRUGS (2)
  1. OMNIPAQUE [Suspect]
     Active Substance: IOHEXOL
     Indication: Computerised tomogram thorax
     Dosage: 85 ML, TOTAL
     Route: 042
     Dates: start: 20231117, end: 20231117
  2. OMNIPAQUE [Suspect]
     Active Substance: IOHEXOL
     Indication: Lymphadenopathy mediastinal

REACTIONS (8)
  - Pneumothorax [Fatal]
  - Cerebellar infarction [Fatal]
  - Cerebral infarction [Fatal]
  - Respiratory arrest [Fatal]
  - Cardiac arrest [Fatal]
  - Anaphylactic reaction [Fatal]
  - Ventricular tachycardia [Fatal]
  - Seizure [Fatal]

NARRATIVE: CASE EVENT DATE: 20231117
